FAERS Safety Report 6044385-1 (Version None)
Quarter: 2009Q1

REPORT INFORMATION
  Report Type: 
  Country: None (occurrence: None)
  Receive Date: 20090120
  Receipt Date: 20081015
  Transmission Date: 20090719
  Serious: No
  Sender: FDA-Public Use
  Company Number: US-BAYER-200814095BCC

PATIENT
  Age: 77 Year
  Sex: Female
  Weight: 91 kg

DRUGS (6)
  1. ALEVE [Suspect]
     Indication: ARTHRALGIA
     Dosage: TOTAL DAILY DOSE: 440 MG  UNIT DOSE: 220 MG
     Route: 048
     Dates: start: 20081015
  2. SYNTHROID [Concomitant]
  3. AVALIDE [Concomitant]
  4. METFORMIN HCL [Concomitant]
  5. LOVASTATIN [Concomitant]
  6. EQUATE ASPIRIN [Concomitant]

REACTIONS (1)
  - ARTHRALGIA [None]
